FAERS Safety Report 22630986 (Version 1)
Quarter: 2023Q2

REPORT INFORMATION
  Report Type: Spontaneous
  Country: US (occurrence: US)
  Receive Date: 20230622
  Receipt Date: 20230622
  Transmission Date: 20230721
  Serious: No
  Sender: FDA-Public Use
  Company Number: US-ABBVIE-5299997

PATIENT
  Sex: Female

DRUGS (1)
  1. VRAYLAR [Suspect]
     Active Substance: CARIPRAZINE
     Indication: Major depression
     Dosage: FORM STRENGTH: 1.5 MILLIGRAM
     Route: 048
     Dates: end: 202305

REACTIONS (2)
  - Pain in extremity [Recovered/Resolved]
  - Thyroid disorder [Unknown]
